FAERS Safety Report 4533226-7 (Version None)
Quarter: 2004Q4

REPORT INFORMATION
  Report Type: 
  Country: None (occurrence: None)
  Receive Date: 20041220
  Receipt Date: 20041220
  Transmission Date: 20050328
  Serious: Yes (Other)
  Sender: FDA-Public Use
  Company Number: None

PATIENT
  Age: 68 Year
  Sex: Male
  Weight: 92.9874 kg

DRUGS (3)
  1. PACERONE [Suspect]
     Indication: ATRIAL FIBRILLATION
     Dosage: 800MG   2XDAY   ORAL
     Route: 048
     Dates: start: 20041130, end: 20041205
  2. WARFARIN SODIUM [Concomitant]
  3. COREG6 [Concomitant]

REACTIONS (1)
  - DYSPNOEA [None]
